FAERS Safety Report 14723953 (Version 1)
Quarter: 2018Q2

REPORT INFORMATION
  Report Type: Spontaneous
  Country: DE (occurrence: DE)
  Receive Date: 20180405
  Receipt Date: 20180405
  Transmission Date: 20180711
  Serious: Yes (Other)
  Sender: FDA-Public Use
  Company Number: PHHY2018DE059815

PATIENT
  Age: 50 Year
  Sex: Female

DRUGS (3)
  1. TEGRETAL [Suspect]
     Active Substance: CARBAMAZEPINE
     Indication: TINNITUS
     Dosage: 800 MG, QD
     Route: 048
  2. L-THYROXINE [Concomitant]
     Active Substance: LEVOTHYROXINE
     Indication: HYPOTHYROIDISM
     Dosage: 75 UG, QD
     Route: 048
  3. CANDESARTAN. [Concomitant]
     Active Substance: CANDESARTAN
     Indication: HYPERTENSION
     Dosage: DAILY DOSE: 16 MG MILLGRAM(S) EVERY DAYS
     Route: 048

REACTIONS (5)
  - Nausea [Unknown]
  - Muscle contractions involuntary [Unknown]
  - Condition aggravated [Unknown]
  - Vomiting [Unknown]
  - Tremor [Unknown]

NARRATIVE: CASE EVENT DATE: 20180115
